FAERS Safety Report 9247650 (Version 1)
Quarter: 2013Q1

REPORT INFORMATION
  Report Type: Spontaneous
  Country: US (occurrence: None)
  Receive Date: 20121130
  Receipt Date: 20121130
  Transmission Date: 20140127
  Serious: Yes (Other)
  Sender: FDA-Public Use
  Company Number: 1111USA02499

PATIENT
  Age: 54 Year
  Sex: Female
  Weight: 59 kg

DRUGS (13)
  1. FOSAMAX [Suspect]
     Indication: OSTEOPENIA
     Route: 048
     Dates: start: 20020103, end: 20071109
  2. PREMARIN (ESTROGENS, CONJUGATED) [Concomitant]
  3. ESTROGENS (UNSPECIFIED) (ESTROGENS (UNSPECIFIED)) [Concomitant]
  4. ESTRADIOL (+) ESTRIOL (+) PROGESTERONE (ESTRADIOL (+) ESTRIOL (+) PROGESTERONE) [Concomitant]
  5. TESTOSTERONE (TESTOSTERONE) [Concomitant]
  6. ALLEGRA [Concomitant]
  7. ESTRADIOL (ESTRADIOL) [Concomitant]
  8. SLEEPYTIME TEA (BLACKBERRY (+) CHAMOMILE (+) HAWTHORN (+) LINDEN (+) ORANGE (+) ROSE (UNSPECIFIED) (+) SPEARMINT (+) WEST INDIAN LEMONGRASS0 [Concomitant]
  9. NYTOL HERBAL (HOPS (+) PASSIONFLOWER (+) VALERIAN) [Concomitant]
  10. DIPHENHYDRAMINE HYDROCHLORIDE (DIPHENHYDRAMINE HYDROCHLORIDE) [Concomitant]
  11. TYLENOL (ACETAMINOPHEN) [Concomitant]
  12. CLARITIN (LORATADINE) [Concomitant]
  13. ZYRTEC (CETIRIZINE HYDROCHLORIDE) [Concomitant]

REACTIONS (30)
  - Osteonecrosis of jaw [None]
  - Periodontitis [None]
  - Periodontal disease [None]
  - Bone loss [None]
  - Excessive granulation tissue [None]
  - Tooth loss [None]
  - Dental caries [None]
  - Arthritis [None]
  - Dry mouth [None]
  - Thirst [None]
  - Denture wearer [None]
  - Depression [None]
  - Ovarian failure [None]
  - Muscle strain [None]
  - Muscle spasms [None]
  - Somnolence [None]
  - Seborrhoeic keratosis [None]
  - Weight increased [None]
  - Epicondylitis [None]
  - Poor quality sleep [None]
  - Drug ineffective [None]
  - Factor II mutation [None]
  - Measles [None]
  - Mumps [None]
  - Varicella [None]
  - Cystitis [None]
  - Bronchitis [None]
  - Hypotension [None]
  - Hot flush [None]
  - Osteoporosis [None]
